FAERS Safety Report 12054183 (Version 2)
Quarter: 2016Q1

REPORT INFORMATION
  Report Type: Spontaneous
  Country: US (occurrence: US)
  Receive Date: 20160209
  Receipt Date: 20160329
  Transmission Date: 20160526
  Serious: Yes (Other)
  Sender: FDA-Public Use
  Company Number: US-TEVA-631857USA

PATIENT
  Age: 59 Year
  Sex: Female

DRUGS (10)
  1. CALCIUM [Concomitant]
     Active Substance: CALCIUM
  2. BENADRYL [Concomitant]
     Active Substance: DIPHENHYDRAMINE HYDROCHLORIDE
  3. VITAMIN B12 [Concomitant]
     Active Substance: CYANOCOBALAMIN
  4. DIAZEPAM. [Concomitant]
     Active Substance: DIAZEPAM
  5. COPAXONE [Suspect]
     Active Substance: GLATIRAMER ACETATE
     Indication: MULTIPLE SCLEROSIS
     Dosage: 20 MILLIGRAM DAILY;
     Route: 058
     Dates: start: 20130613
  6. CALCIUM [Concomitant]
     Active Substance: CALCIUM
  7. MULTIVIT [Concomitant]
     Active Substance: VITAMINS
  8. TYLENOL [Concomitant]
     Active Substance: ACETAMINOPHEN
  9. C-1000-C [Concomitant]
  10. ALEVE [Concomitant]
     Active Substance: NAPROXEN SODIUM

REACTIONS (6)
  - Abasia [Recovered/Resolved]
  - Groin pain [Recovered/Resolved]
  - Gait disturbance [Recovered/Resolved]
  - Immediate post-injection reaction [Recovered/Resolved]
  - Aphasia [Recovered/Resolved]
  - Chest pain [Recovered/Resolved]

NARRATIVE: CASE EVENT DATE: 201512
